FAERS Safety Report 8209972-0 (Version None)
Quarter: 2012Q1

REPORT INFORMATION
  Report Type: 
  Country: None (occurrence: None)
  Receive Date: 20120314
  Receipt Date: 20111018
  Transmission Date: 20120608
  Serious: No
  Sender: FDA-Public Use
  Company Number: US-ASTRAZENECA-2011SE62921

PATIENT
  Age: 74 Year
  Sex: Female
  Weight: 72.6 kg

DRUGS (7)
  1. METOPROLOL SUCCINATE [Suspect]
     Indication: HYPERTENSION
     Route: 048
     Dates: start: 20110901
  2. JANUVIA [Concomitant]
     Indication: DIABETES MELLITUS
  3. LOSARTAN POTASSIUM [Concomitant]
     Indication: HYPERTENSION
  4. NEXIUM [Concomitant]
     Indication: GASTROOESOPHAGEAL REFLUX DISEASE
  5. LASIX [Concomitant]
     Indication: OEDEMA PERIPHERAL
  6. METFORMIN [Concomitant]
     Indication: DIABETES MELLITUS
  7. PREDNISONE TAB [Concomitant]
     Indication: RHEUMATOID ARTHRITIS

REACTIONS (2)
  - OEDEMA PERIPHERAL [None]
  - JOINT SWELLING [None]
